FAERS Safety Report 4902835-5 (Version None)
Quarter: 2006Q1

REPORT INFORMATION
  Report Type: 
  Country: None (occurrence: None)
  Receive Date: 20060201
  Receipt Date: 20051129
  Transmission Date: 20060701
  Serious: No
  Sender: FDA-Public Use
  Company Number: 2005PV005123

PATIENT
  Age: 68 Year
  Sex: Male
  Weight: 109.7705 kg

DRUGS (6)
  1. BYETTA [Suspect]
     Indication: DIABETES MELLITUS NON-INSULIN-DEPENDENT
     Dosage: 5 MCG; BID; SC ; 10 MCG; BID; SC
     Route: 058
     Dates: start: 20051010, end: 20051109
  2. BYETTA [Suspect]
     Indication: DIABETES MELLITUS NON-INSULIN-DEPENDENT
     Dosage: 5 MCG; BID; SC ; 10 MCG; BID; SC
     Route: 058
     Dates: start: 20051110
  3. LANTUS [Concomitant]
  4. GLUCOPHAGE ^BRISTOL^ [Concomitant]
  5. MYERS SQUIBB AMARYL [Concomitant]
  6. AVANDIA [Concomitant]

REACTIONS (4)
  - DECREASED APPETITE [None]
  - INCREASED UPPER AIRWAY SECRETION [None]
  - NAUSEA [None]
  - WEIGHT DECREASED [None]
